FAERS Safety Report 24379495 (Version 1)
Quarter: 2024Q3

REPORT INFORMATION
  Report Type: Spontaneous
  Country: US (occurrence: None)
  Receive Date: 20240929
  Receipt Date: 20240929
  Transmission Date: 20241016
  Serious: Yes (Disabling)
  Sender: Public
  Company Number: None

PATIENT
  Sex: Female

DRUGS (1)
  1. COSMETICS [Suspect]
     Active Substance: COSMETICS
     Indication: Prophylaxis against solar radiation
     Dosage: TOPICAL
     Route: 061
     Dates: start: 20240927, end: 20240929

REACTIONS (6)
  - Lip swelling [None]
  - Lip dry [None]
  - Lip pain [None]
  - Application site burn [None]
  - Lip erythema [None]
  - Application site erythema [None]

NARRATIVE: CASE EVENT DATE: 20240929
